FAERS Safety Report 13720186 (Version 1)
Quarter: 2017Q3

REPORT INFORMATION
  Report Type: Other
  Country: DE (occurrence: DE)
  Receive Date: 20170706
  Receipt Date: 20170706
  Transmission Date: 20171127
  Serious: No
  Sender: FDA-Public Use
  Company Number: DE-LUPIN PHARMACEUTICALS INC.-E2B_00006696

PATIENT
  Sex: Male
  Weight: 106.5 kg

DRUGS (3)
  1. EZETROL [Suspect]
     Active Substance: EZETIMIBE
     Indication: HYPERLIPIDAEMIA
     Dosage: 10 MG,UNK,UNKNOWN
     Route: 048
     Dates: start: 20160510, end: 20160512
  2. SIMVASTATIN. [Suspect]
     Active Substance: SIMVASTATIN
     Indication: HYPERLIPIDAEMIA
     Dosage: 20 MG,UNK,UNKNOWN
     Route: 048
     Dates: end: 201605
  3. ATORVASTATIN [Suspect]
     Active Substance: ATORVASTATIN
     Indication: HYPERLIPIDAEMIA
     Dosage: 40 MG,UNK,
     Route: 048
     Dates: start: 20160505, end: 20160508

REACTIONS (2)
  - Dyspnoea [Recovered/Resolved]
  - Myopathy [Recovered/Resolved]
